FAERS Safety Report 13451809 (Version 2)
Quarter: 2017Q2

REPORT INFORMATION
  Report Type: Spontaneous
  Country: US (occurrence: US)
  Receive Date: 20170418
  Receipt Date: 20170606
  Transmission Date: 20170830
  Serious: No
  Sender: FDA-Public Use
  Company Number: US-PFIZER INC-2017165344

PATIENT
  Age: 89 Year
  Sex: Female

DRUGS (8)
  1. SUTENT [Suspect]
     Active Substance: SUNITINIB MALATE
     Indication: RENAL CELL CARCINOMA
     Dosage: 37.5 MG, CYCLIC, (DAILY FOR 28 DAYS, OFF FOR 14 DAYS, AND THEN RESTART THIS CYCLE)
     Route: 048
     Dates: start: 20170209, end: 20170224
  2. ARMOUR THYROID [Concomitant]
     Active Substance: THYROID, PORCINE
     Indication: HYPOTHYROIDISM
     Dosage: 30 MG, 1X/DAY DAILY AT BEDTIME
     Route: 048
  3. GABAPENTIN. [Concomitant]
     Active Substance: GABAPENTIN
     Indication: NEURALGIA
     Dosage: 300 MG, DAILY, ^AT BEDTIME^
     Route: 048
  4. MIRALAX [Concomitant]
     Active Substance: POLYETHYLENE GLYCOL 3350
     Indication: CONSTIPATION
     Dosage: UNK, ^PER PACKAGE INSTRUCTIONS^
     Route: 048
  5. GLYCERIN. [Concomitant]
     Active Substance: GLYCERIN
     Indication: CONSTIPATION
     Dosage: UNK, AS NEEDED, ^PER PACKAGE INSTRUCTIONS SPORATICALLY^
     Route: 054
  6. ADVIL [Concomitant]
     Active Substance: IBUPROFEN
     Indication: PAIN
     Dosage: 200 MG, UNK,(UP TO TWICE DAILY)
     Route: 048
  7. GABAPENTIN. [Concomitant]
     Active Substance: GABAPENTIN
     Dosage: 300 MG, 1X/DAY (AT BEDTIME)
     Route: 048
  8. OXYCODONE [Concomitant]
     Active Substance: OXYCODONE
     Indication: PAIN
     Dosage: 5 MG, AS NEEDED, ^SPORADICALLY WHEN NEEDED^
     Route: 048

REACTIONS (3)
  - Movement disorder [Recovered/Resolved]
  - Gait disturbance [Recovered/Resolved]
  - Coordination abnormal [Recovered/Resolved]

NARRATIVE: CASE EVENT DATE: 201702
